FAERS Safety Report 8004675-X (Version None)
Quarter: 2011Q4

REPORT INFORMATION
  Report Type: 
  Country: None (occurrence: None)
  Receive Date: 20111223
  Receipt Date: 20111215
  Transmission Date: 20120403
  Serious: Yes (Hospitalization)
  Sender: FDA-Public Use
  Company Number: US-JNJFOC-20111206979

PATIENT
  Sex: Female
  Weight: 58.97 kg

DRUGS (4)
  1. REMICADE [Suspect]
     Indication: CROHN'S DISEASE
     Route: 042
     Dates: start: 20110101
  2. REMICADE [Suspect]
     Route: 042
     Dates: start: 20050101, end: 20100101
  3. REMICADE [Suspect]
     Route: 042
     Dates: start: 20100101, end: 20110101
  4. YAZ [Concomitant]
     Indication: CONTRACEPTION
     Route: 065
     Dates: start: 20050101

REACTIONS (4)
  - DRUG INEFFECTIVE [None]
  - DIARRHOEA [None]
  - ADHESION [None]
  - CROHN'S DISEASE [None]
